FAERS Safety Report 5393078-2 (Version None)
Quarter: 2007Q3

REPORT INFORMATION
  Report Type: 
  Country: None (occurrence: None)
  Receive Date: 20070719
  Receipt Date: 20070712
  Transmission Date: 20080115
  Serious: Yes (Hospitalization)
  Sender: FDA-Public Use
  Company Number: E3810-01089-SPO-FR

PATIENT
  Age: 19 Year
  Sex: Male

DRUGS (4)
  1. RABEPRAZOLE SODIUM [Suspect]
     Dosage: ORAL
     Route: 048
     Dates: start: 20051208, end: 20051212
  2. CARTREX (ACECLOFENAC) [Suspect]
     Dosage: ORAL
     Route: 048
     Dates: start: 20051208, end: 20051212
  3. ACETAMINOPHEN [Suspect]
     Dosage: 2 IN 1 D, ORAL
     Route: 048
  4. LUMIRELAX (LUMIRELAX) [Suspect]
     Dosage: 10 PER DAY, ORAL
     Route: 048
     Dates: start: 20051208, end: 20051212

REACTIONS (1)
  - RENAL FAILURE ACUTE [None]
